FAERS Safety Report 21355749 (Version 1)
Quarter: 2022Q3

REPORT INFORMATION
  Report Type: Spontaneous
  Country: US (occurrence: US)
  Receive Date: 20220920
  Receipt Date: 20220920
  Transmission Date: 20221026
  Serious: No
  Sender: FDA-Public Use
  Company Number: US-THERAPEUTICSMD-2022TMD00229

PATIENT
  Age: 15 Year
  Sex: Female
  Weight: 58.957 kg

DRUGS (2)
  1. ANNOVERA [Suspect]
     Active Substance: ETHINYL ESTRADIOL\SEGESTERONE ACETATE
     Indication: Dysmenorrhoea
     Dosage: 1 RING, 21 DAYS ON, 7 DAYS OFF
     Route: 067
     Dates: start: 202201
  2. UNSPECIFIED INHALER FOR ASTHMA [Concomitant]

REACTIONS (2)
  - Dysmenorrhoea [Not Recovered/Not Resolved]
  - Drug ineffective for unapproved indication [Not Recovered/Not Resolved]

NARRATIVE: CASE EVENT DATE: 20220223
